FAERS Safety Report 4558371-1 (Version None)
Quarter: 2005Q1

REPORT INFORMATION
  Report Type: 
  Country: None (occurrence: None)
  Receive Date: 20050121
  Receipt Date: 20021220
  Transmission Date: 20050727
  Serious: Yes (Death, Hospitalization, Other)
  Sender: FDA-Public Use
  Company Number: JP-MERCK-0212USA02189

PATIENT
  Age: 72 Year
  Sex: Female

DRUGS (18)
  1. CONIEL [Suspect]
     Indication: HYPERTENSION
     Route: 048
     Dates: end: 20020609
  2. GASLON [Suspect]
     Indication: GASTRITIS
     Route: 048
     Dates: start: 20020404, end: 20020609
  3. MAGNESIUM OXIDE [Suspect]
     Indication: CONSTIPATION
     Route: 048
     Dates: start: 20020404, end: 20020609
  4. PEPCID RPD [Suspect]
     Indication: GASTRITIS
     Route: 048
     Dates: start: 20020404, end: 20020609
  5. BAKTAR [Suspect]
     Indication: INFECTION PROPHYLAXIS
     Route: 048
     Dates: start: 20020404, end: 20020609
  6. PIRARUBICIN [Concomitant]
     Route: 065
     Dates: start: 20020405
  7. PIRARUBICIN [Concomitant]
     Route: 065
     Dates: start: 20020414
  8. PIRARUBICIN [Concomitant]
     Route: 065
     Dates: start: 20020522
  9. VINCRISTINE [Concomitant]
     Route: 065
     Dates: start: 20020514
  10. VINCRISTINE [Concomitant]
     Route: 065
     Dates: start: 20020405
  11. VINCRISTINE [Concomitant]
     Route: 065
     Dates: start: 20020422
  12. PREDNISOLONE [Concomitant]
     Route: 065
     Dates: start: 20020514
  13. PREDNISOLONE [Concomitant]
     Route: 065
     Dates: start: 20020405
  14. PREDNISOLONE [Concomitant]
     Route: 065
     Dates: start: 20020422
  15. CYCLOPHOSPHAMIDE [Concomitant]
     Route: 065
     Dates: start: 20020514
  16. CYCLOPHOSPHAMIDE [Concomitant]
     Route: 065
     Dates: start: 20020405
  17. CYCLOPHOSPHAMIDE [Concomitant]
     Route: 065
     Dates: start: 20020422
  18. ALLOPURINOL [Suspect]
     Indication: HYPERURICAEMIA
     Route: 065
     Dates: start: 20020404, end: 20020609

REACTIONS (6)
  - DISSEMINATED INTRAVASCULAR COAGULATION [None]
  - GASTROINTESTINAL HAEMORRHAGE [None]
  - PNEUMONIA [None]
  - RESPIRATORY FAILURE [None]
  - STAPHYLOCOCCAL SEPSIS [None]
  - TOXIC EPIDERMAL NECROLYSIS [None]
